FAERS Safety Report 11539657 (Version 2)
Quarter: 2015Q4

REPORT INFORMATION
  Report Type: Report from Study
  Country: BR (occurrence: BR)
  Receive Date: 20150923
  Receipt Date: 20151001
  Transmission Date: 20160304
  Serious: Yes (Hospitalization)
  Sender: FDA-Public Use
  Company Number: PHHY2015BR110952

PATIENT
  Age: 79 Year
  Sex: Female
  Weight: 57 kg

DRUGS (10)
  1. AEROLIN [Suspect]
     Active Substance: ALBUTEROL
     Indication: DYSPNOEA
     Dosage: 100 MG, Q6H, IF SHE HAS AN EPISODE
     Route: 055
  2. LACTOSE [Concomitant]
     Active Substance: LACTOSE
     Indication: GASTROINTESTINAL DISORDER
     Route: 048
     Dates: start: 201505
  3. ESPIROLACTONA [Concomitant]
     Indication: HEART RATE ABNORMAL
     Dosage: 1 DF, QD
     Route: 048
     Dates: start: 201505
  4. FORASEQ [Suspect]
     Active Substance: BUDESONIDE\FORMOTEROL FUMARATE
     Indication: ASTHMA
  5. SEEBRI BREEZHALER [Suspect]
     Active Substance: GLYCOPYRROLATE
     Indication: DYSPNOEA
     Dosage: 1 DF, QMO
     Route: 055
     Dates: start: 20150829, end: 20150905
  6. AEROLIN [Suspect]
     Active Substance: ALBUTEROL
     Dosage: UNK, Q4H
     Route: 055
     Dates: start: 201505
  7. FORASEQ [Suspect]
     Active Substance: BUDESONIDE\FORMOTEROL FUMARATE
     Indication: BRONCHITIS
     Dosage: 1 DF, BID (IN THE MORNING AND AT NIGHT)
     Route: 055
  8. ALENIA//ESOMEPRAZOLE MAGNESIUM [Suspect]
     Active Substance: ESOMEPRAZOLE MAGNESIUM
     Indication: ASTHMA
     Dosage: 1 DF, QD
     Route: 055
  9. FLUOXETINE [Concomitant]
     Active Substance: FLUOXETINE HYDROCHLORIDE
     Indication: SEDATIVE THERAPY
     Dosage: 1 DF, QD
     Dates: start: 201505
  10. QUETIAPINA [Concomitant]
     Active Substance: QUETIAPINE
     Indication: SLEEP DISORDER
     Dosage: 1 DF, QHS
     Route: 048
     Dates: start: 201505

REACTIONS (7)
  - Malaise [Not Recovered/Not Resolved]
  - Liver disorder [Recovering/Resolving]
  - Dyspnoea [Recovered/Resolved]
  - Off label use [Unknown]
  - Cardiac disorder [Not Recovered/Not Resolved]
  - Pulmonary mycosis [Recovered/Resolved]
  - Heart rate increased [Recovering/Resolving]

NARRATIVE: CASE EVENT DATE: 201505
